FAERS Safety Report 12760921 (Version 2)
Quarter: 2016Q3

REPORT INFORMATION
  Report Type: Spontaneous
  Country: BR (occurrence: BR)
  Receive Date: 20160919
  Receipt Date: 20160921
  Transmission Date: 20161109
  Serious: Yes (Hospitalization, Other)
  Sender: FDA-Public Use
  Company Number: BR-009507513-1609BRA006376

PATIENT
  Age: 88 Year
  Sex: Female
  Weight: 65 kg

DRUGS (3)
  1. GLIMEPIRIDE. [Concomitant]
     Active Substance: GLIMEPIRIDE
     Indication: DIABETES MELLITUS
     Dosage: 4 MG TABLET, 1 TABLET A DAY
     Dates: start: 2001
  2. LOSARTAN POTASSIUM. [Concomitant]
     Active Substance: LOSARTAN POTASSIUM
     Indication: HYPERTENSION
     Dosage: 50 MG TABLET, 2 TABLETS ONCE A DAY
     Route: 048
     Dates: start: 2014
  3. JANUMET XR [Suspect]
     Active Substance: METFORMIN HYDROCHLORIDE\SITAGLIPTIN PHOSPHATE
     Indication: DIABETES MELLITUS
     Dosage: 50/1000 MG TABLET, 1 TABLET ONCE A DAY
     Route: 048
     Dates: start: 201601

REACTIONS (5)
  - Wound healing normal [Recovered/Resolved]
  - Inappropriate schedule of drug administration [Unknown]
  - Acetabulum fracture [Recovered/Resolved]
  - Fall [Unknown]
  - Gait disturbance [Not Recovered/Not Resolved]

NARRATIVE: CASE EVENT DATE: 2016
